FAERS Safety Report 7831240-7 (Version None)
Quarter: 2011Q4

REPORT INFORMATION
  Report Type: 
  Country: None (occurrence: None)
  Receive Date: 20111021
  Receipt Date: 20111019
  Transmission Date: 20120403
  Serious: Yes (Other)
  Sender: FDA-Public Use
  Company Number: NL-ROXANE LABORATORIES, INC.-2011-RO-01505RO

PATIENT
  Age: 71 Year
  Sex: Female

DRUGS (3)
  1. METHOTREXATE [Suspect]
     Indication: POLYMYALGIA RHEUMATICA
  2. PREDNISONE [Suspect]
  3. PREDNISONE [Suspect]
     Indication: POLYMYALGIA RHEUMATICA
     Dosage: 20 MG

REACTIONS (3)
  - DYSPNOEA [None]
  - DRUG INEFFECTIVE FOR UNAPPROVED INDICATION [None]
  - RESPIRATORY ALKALOSIS [None]
